FAERS Safety Report 10373887 (Version 1)
Quarter: 2014Q1

REPORT INFORMATION
  Report Type: Spontaneous
  Country: US (occurrence: None)
  Receive Date: 20140306
  Receipt Date: 20140306
  Transmission Date: 20141002
  Serious: Yes (Hospitalization)
  Sender: FDA-Public Use
  Company Number: 163-21880-13074231

PATIENT
  Age: 73 Year
  Sex: Male

DRUGS (9)
  1. REVLIMID [Suspect]
     Indication: PLASMA CELL MYELOMA
     Route: 048
     Dates: start: 20130429
  2. DIOVAN (VALSARTAN) [Concomitant]
  3. AMLODIPINE [Concomitant]
  4. QUINAPRIL [Concomitant]
  5. MELOXICAM [Concomitant]
  6. TRAMADOL [Concomitant]
  7. LYRICA (PREGABALIN) [Concomitant]
  8. DEXAMETHASONE [Concomitant]
  9. ASA (ACETYLSALICYIC ACID) [Concomitant]

REACTIONS (3)
  - Pneumonia [None]
  - Asthenia [None]
  - Urinary tract infection [None]
